FAERS Safety Report 9836628 (Version 2)
Quarter: 2014Q1

REPORT INFORMATION
  Report Type: Spontaneous
  Country: GB (occurrence: GB)
  Receive Date: 20140123
  Receipt Date: 20140321
  Transmission Date: 20141002
  Serious: Yes (Hospitalization)
  Sender: FDA-Public Use
  Company Number: GB-MERCK-1401GBR005941

PATIENT
  Age: 55 Year
  Sex: Female
  Weight: 56 kg

DRUGS (18)
  1. DEXAMETHASONE 4MG/ML INJECTION [Suspect]
     Indication: PRODUCT USED FOR UNKNOWN INDICATION
     Dosage: 4 MG, QD
     Dates: start: 20130711, end: 20130719
  2. AFINITOR [Suspect]
     Indication: BREAST CANCER METASTATIC
     Dosage: 10 MG, QD
     Route: 048
     Dates: start: 20130307, end: 20130710
  3. DICLOFENAC [Suspect]
     Dosage: 50 MG, TID
     Dates: start: 20130711, end: 20130719
  4. EXEMESTANE [Suspect]
     Indication: BREAST CANCER METASTATIC
     Dosage: 25 MG, QD
     Route: 048
     Dates: start: 20130307, end: 20130710
  5. EXEMESTANE [Suspect]
     Dosage: 25 MG, QD
     Route: 048
     Dates: start: 201203
  6. CYCLIZINE [Concomitant]
     Indication: ANTIEMETIC SUPPORTIVE CARE
     Dosage: 50 MG, TID
     Route: 048
     Dates: start: 20130313
  7. FENTANYL [Concomitant]
     Indication: ANALGESIC THERAPY
     Dosage: 25 DF, QH
     Dates: start: 20130607
  8. FENTANYL [Concomitant]
     Indication: PRODUCT USED FOR UNKNOWN INDICATION
     Dosage: 37 DF, UNK
     Dates: start: 20130723
  9. OMEPRAZOLE [Concomitant]
     Indication: PROPHYLAXIS
     Dosage: 10 MG, QD
     Route: 048
     Dates: start: 20130605
  10. OMEPRAZOLE [Concomitant]
     Indication: PRODUCT USED FOR UNKNOWN INDICATION
     Dosage: 40 MG, BID
     Route: 042
     Dates: start: 20130719
  11. OMEPRAZOLE [Concomitant]
     Indication: PRODUCT USED FOR UNKNOWN INDICATION
     Dosage: 20 MG, QD
  12. ORAMORPH [Concomitant]
     Indication: ANALGESIC THERAPY
     Dosage: 10 MG, EVERY 4 WEEKS
     Dates: start: 20130313
  13. ACETAMINOPHEN [Concomitant]
     Indication: ANALGESIC THERAPY
     Dosage: 50 MG, QD
     Route: 048
     Dates: start: 20130513
  14. ACETAMINOPHEN [Concomitant]
     Indication: PRODUCT USED FOR UNKNOWN INDICATION
     Dosage: 1 G, QD
     Route: 048
     Dates: start: 20130719
  15. PREGABALIN [Concomitant]
     Indication: NEURALGIA
     Dosage: 25 MG, BID
     Route: 048
     Dates: start: 20130717
  16. PREGABALIN [Concomitant]
     Indication: PRODUCT USED FOR UNKNOWN INDICATION
     Dosage: 75 MG, QD
     Route: 048
     Dates: start: 20130719
  17. VOLTAROL [Concomitant]
     Indication: ANALGESIC THERAPY
     Dosage: 50 MG, TID
     Route: 048
  18. ZOPICLONE [Concomitant]
     Indication: INSOMNIA
     Dosage: 3.75 MG, UNK
     Route: 048
     Dates: start: 20130408

REACTIONS (6)
  - Colitis [Not Recovered/Not Resolved]
  - Diarrhoea [Recovered/Resolved with Sequelae]
  - Rectal haemorrhage [Recovered/Resolved with Sequelae]
  - Vomiting [Unknown]
  - Gastric ulcer [Recovering/Resolving]
  - Gastritis [Unknown]
